FAERS Safety Report 7504246-5 (Version None)
Quarter: 2011Q2

REPORT INFORMATION
  Report Type: 
  Country: None (occurrence: None)
  Receive Date: 20110525
  Receipt Date: 20110511
  Transmission Date: 20111010
  Serious: Yes (Hospitalization, Other)
  Sender: FDA-Public Use
  Company Number: US-BAYER-2011-020940

PATIENT
  Sex: Female
  Weight: 82 kg

DRUGS (9)
  1. ORTHO TRI-CYCLEN [Concomitant]
     Indication: CONTRACEPTION
  2. LEVOTHYROXINE SODIUM [Concomitant]
     Dosage: 25 MCG/24HR, UNK
     Route: 048
  3. PONSTEL [Concomitant]
  4. TRI-SPRINTEC [Concomitant]
     Indication: CONTRACEPTION
     Dosage: UNK
  5. YASMIN [Suspect]
     Indication: ENDOMETRIOSIS
  6. AVIANE-28 [Concomitant]
     Indication: CONTRACEPTION
     Dosage: UNK
  7. MULTI-VITAMIN [Concomitant]
     Route: 048
  8. YASMIN [Suspect]
     Indication: ACNE
  9. YASMIN [Suspect]
     Indication: CONTRACEPTION
     Dosage: UNK

REACTIONS (2)
  - ABDOMINAL PAIN [None]
  - CHOLECYSTITIS CHRONIC [None]
